FAERS Safety Report 18427399 (Version 5)
Quarter: 2022Q1

REPORT INFORMATION
  Report Type: Spontaneous
  Country: US (occurrence: US)
  Receive Date: 20201026
  Receipt Date: 20220124
  Transmission Date: 20220424
  Serious: Yes (Other)
  Sender: FDA-Public Use
  Company Number: US-JNJFOC-20201029952

PATIENT
  Age: 61 Year
  Sex: Female

DRUGS (33)
  1. ELMIRON [Suspect]
     Active Substance: PENTOSAN POLYSULFATE SODIUM
     Indication: Cystitis interstitial
     Route: 048
     Dates: start: 2000, end: 2020
  2. ELMIRON [Suspect]
     Active Substance: PENTOSAN POLYSULFATE SODIUM
     Route: 048
  3. BUDESONIDE [Concomitant]
     Active Substance: BUDESONIDE
     Indication: Irritable bowel syndrome
     Dates: start: 201210
  4. DEXILANT [Concomitant]
     Active Substance: DEXLANSOPRAZOLE
     Indication: Irritable bowel syndrome
     Dates: start: 20170326
  5. EPIPEN [Concomitant]
     Active Substance: EPINEPHRINE
     Indication: Food allergy
     Dates: start: 201007
  6. FESOTERODINE [Concomitant]
     Active Substance: FESOTERODINE
     Indication: Hypertonic bladder
     Dates: start: 201703, end: 201703
  7. IPRATROPIUM [Concomitant]
     Active Substance: IPRATROPIUM
     Indication: Multiple allergies
     Route: 045
     Dates: start: 201007, end: 201905
  8. LEVALBUTEROL TARTRATE [Concomitant]
     Active Substance: LEVALBUTEROL TARTRATE
     Indication: Asthma
     Dates: start: 201703
  9. METHENAMINE HIPPURATE [Concomitant]
     Active Substance: METHENAMINE HIPPURATE
     Indication: Urinary tract infection
     Dates: start: 20110201, end: 201109
  10. MONTELUKAST [Concomitant]
     Active Substance: MONTELUKAST SODIUM
     Indication: Multiple allergies
     Dates: start: 201704, end: 2017
  11. RANITIDINE [Concomitant]
     Active Substance: RANITIDINE
     Indication: Gastrooesophageal reflux disease
     Dates: start: 201704, end: 2017
  12. ESTRADIOL [Concomitant]
     Active Substance: ESTRADIOL
     Indication: Menopause
     Dates: start: 201703, end: 2017
  13. NORTRIPTYLINE [Concomitant]
     Active Substance: NORTRIPTYLINE
     Indication: Neuralgia
     Dates: start: 201908, end: 2019
  14. VIVELLE-DOT [Concomitant]
     Active Substance: ESTRADIOL
     Indication: Menopause
     Dates: start: 201007, end: 201202
  15. MIGRANAL [Concomitant]
     Active Substance: DIHYDROERGOTAMINE MESYLATE
     Indication: Migraine
     Route: 045
     Dates: start: 20100701, end: 201301
  16. PREDNISONE [Concomitant]
     Active Substance: PREDNISONE
     Indication: Multiple allergies
     Dates: start: 20100710, end: 201011
  17. PREDNISONE [Concomitant]
     Active Substance: PREDNISONE
     Indication: Bladder pain
  18. CIPROFLOXACIN [Concomitant]
     Active Substance: CIPROFLOXACIN
     Indication: Bladder pain
     Dates: start: 20100715, end: 201007
  19. CIPROFLOXACIN [Concomitant]
     Active Substance: CIPROFLOXACIN
     Dates: start: 201102, end: 201102
  20. CIPROFLOXACIN [Concomitant]
     Active Substance: CIPROFLOXACIN
     Dates: start: 201203, end: 201203
  21. VAGIFEM [Concomitant]
     Active Substance: ESTRADIOL
     Indication: Menopause
     Dates: start: 201008, end: 201110
  22. AMITRIPTYLINE [Concomitant]
     Active Substance: AMITRIPTYLINE
     Indication: Bladder pain
     Dates: start: 201009
  23. AMITRIPTYLINE [Concomitant]
     Active Substance: AMITRIPTYLINE
     Indication: Migraine prophylaxis
  24. CHLORPROMAZINE [Concomitant]
     Active Substance: CHLORPROMAZINE
     Indication: Migraine
     Dates: start: 201010, end: 201010
  25. SINGULAIR [Concomitant]
     Active Substance: MONTELUKAST SODIUM
     Indication: Multiple allergies
     Dates: start: 201011, end: 201104
  26. XIFAXAN [Concomitant]
     Active Substance: RIFAXIMIN
     Indication: Irritable bowel syndrome
     Dates: start: 201011, end: 2010
  27. LEVAQUIN [Concomitant]
     Active Substance: LEVOFLOXACIN
     Indication: Multiple allergies
     Dates: start: 201102, end: 201102
  28. LEVAQUIN [Concomitant]
     Active Substance: LEVOFLOXACIN
     Indication: Asthma
     Dates: start: 201111, end: 201111
  29. LEVAQUIN [Concomitant]
     Active Substance: LEVOFLOXACIN
     Dates: start: 201207, end: 201207
  30. TOVIAZ [Concomitant]
     Active Substance: FESOTERODINE FUMARATE
     Indication: Bladder pain
     Dates: start: 201104, end: 201304
  31. DEXILANT [Concomitant]
     Active Substance: DEXLANSOPRAZOLE
     Indication: Irritable bowel syndrome
     Dates: start: 201109, end: 201209
  32. CEFADROXIL [Concomitant]
     Active Substance: CEFADROXIL
     Indication: Bladder pain
     Dates: start: 201201, end: 201201
  33. BENZONATATE [Concomitant]
     Active Substance: BENZONATATE
     Indication: Nasopharyngitis
     Dates: start: 201207, end: 201207

REACTIONS (8)
  - Retinal dystrophy [Not Recovered/Not Resolved]
  - Dry age-related macular degeneration [Not Recovered/Not Resolved]
  - Cataract [Not Recovered/Not Resolved]
  - Vitreous detachment [Not Recovered/Not Resolved]
  - Retinopathy [Not Recovered/Not Resolved]
  - Ocular toxicity [Not Recovered/Not Resolved]
  - Off label use [Unknown]
  - Product use issue [Unknown]

NARRATIVE: CASE EVENT DATE: 20160602
